FAERS Safety Report 24625013 (Version 1)
Quarter: 2024Q4

REPORT INFORMATION
  Report Type: Report from Study
  Country: US (occurrence: US)
  Receive Date: 20241115
  Receipt Date: 20241115
  Transmission Date: 20250115
  Serious: No
  Sender: ROCHE
  Company Number: US-ROCHE-10000035568

PATIENT
  Age: 67 Year
  Sex: Female
  Weight: 94.35 kg

DRUGS (13)
  1. OCREVUS [Suspect]
     Active Substance: OCRELIZUMAB
     Indication: Relapsing multiple sclerosis
     Dosage: THERAPY IS NOT ONGING.
     Route: 042
     Dates: start: 202101
  2. OCREVUS [Suspect]
     Active Substance: OCRELIZUMAB
     Indication: Multiple sclerosis relapse
  3. GABAPENTIN [Concomitant]
     Active Substance: GABAPENTIN
  4. OLMESARTAN [Concomitant]
     Active Substance: OLMESARTAN
  5. AMLODIPINE [Concomitant]
     Active Substance: AMLODIPINE BESYLATE
  6. EFFEXOR XR [Concomitant]
     Active Substance: VENLAFAXINE HYDROCHLORIDE
  7. LAMOTRIGINE [Concomitant]
     Active Substance: LAMOTRIGINE
  8. SYNTHROID [Concomitant]
     Active Substance: LEVOTHYROXINE SODIUM
  9. RABEPRAZOLE SODIUM [Concomitant]
     Active Substance: RABEPRAZOLE SODIUM
  10. CELEBREX [Concomitant]
     Active Substance: CELECOXIB
  11. MOUNJARO [Concomitant]
     Active Substance: TIRZEPATIDE
  12. PRALUENT [Concomitant]
     Active Substance: ALIROCUMAB
  13. COPAXONE [Concomitant]
     Active Substance: GLATIRAMER ACETATE

REACTIONS (5)
  - Blood immunoglobulin G decreased [Not Recovered/Not Resolved]
  - COVID-19 [Recovered/Resolved]
  - Blood immunoglobulin A decreased [Not Recovered/Not Resolved]
  - Ligament sprain [Unknown]
  - Blood immunoglobulin M decreased [Not Recovered/Not Resolved]

NARRATIVE: CASE EVENT DATE: 20240101
